FAERS Safety Report 5352946-8 (Version None)
Quarter: 2007Q2

REPORT INFORMATION
  Report Type: 
  Country: None (occurrence: None)
  Receive Date: 20070607
  Receipt Date: 20070601
  Transmission Date: 20071010
  Serious: Yes (Hospitalization)
  Sender: FDA-Public Use
  Company Number: 2007-02638

PATIENT
  Age: 28 Year
  Sex: Male

DRUGS (2)
  1. IBUPROFEN [Suspect]
     Dosage: UNKNOWN QTY OF 200MG TABLETS, ORAL
     Route: 048
     Dates: start: 20070101
  2. ACETAMINOPHEN [Suspect]
     Dosage: 250 G, SINGLE, ORAL
     Route: 048
     Dates: start: 20070101

REACTIONS (5)
  - GASTROINTESTINAL NECROSIS [None]
  - HAEMODIALYSIS [None]
  - INTENTIONAL OVERDOSE [None]
  - RENAL FAILURE ACUTE [None]
  - RHABDOMYOLYSIS [None]
